FAERS Safety Report 16532248 (Version 1)
Quarter: 2019Q3

REPORT INFORMATION
  Report Type: Spontaneous
  Country: CN (occurrence: CN)
  Receive Date: 20190704
  Receipt Date: 20190704
  Transmission Date: 20191004
  Serious: Yes (Disabling)
  Sender: FDA-Public Use
  Company Number: CN-PFIZER INC-2019281122

PATIENT
  Age: 64 Year
  Sex: Male
  Weight: 53 kg

DRUGS (5)
  1. PHARMORUBICIN [Suspect]
     Active Substance: EPIRUBICIN
     Indication: HEPATIC CANCER
     Dosage: 10 MG, 1X/DAY
     Dates: start: 20190609, end: 20190609
  2. RALTITREXED [Suspect]
     Active Substance: RALTITREXED
     Indication: HEPATIC CANCER
     Dosage: 2 MG, 1X/DAY
     Dates: start: 20190609, end: 20190609
  3. REDUCED GLUTATHIONE SODIUM [Concomitant]
     Active Substance: GLUTATHIONE
     Indication: HEPATIC FUNCTION ABNORMAL
     Dosage: 1.2 G, 1X/DAY
     Route: 041
     Dates: start: 20190608, end: 20190617
  4. IODINATED OIL [Suspect]
     Active Substance: IODINE
     Indication: HEPATIC CANCER
     Dosage: 5 ML, 1X/DAY
     Dates: start: 20190609, end: 20190609
  5. AI HENG [Suspect]
     Active Substance: OXALIPLATIN
     Indication: HEPATIC CANCER
     Dosage: 30 MG, 1X/DAY
     Dates: start: 20190609, end: 20190609

REACTIONS (1)
  - Hepatic function abnormal [Recovering/Resolving]

NARRATIVE: CASE EVENT DATE: 20190611
